FAERS Safety Report 19151084 (Version 1)
Quarter: 2021Q2

REPORT INFORMATION
  Report Type: Spontaneous
  Country: US (occurrence: US)
  Receive Date: 20210419
  Receipt Date: 20210419
  Transmission Date: 20210717
  Serious: No
  Sender: FDA-Public Use
  Company Number: US-TEVA-2021-US-1899189

PATIENT
  Sex: Female

DRUGS (1)
  1. ALBUTEROL SULFATE HFA TEVA [Suspect]
     Active Substance: ALBUTEROL SULFATE
     Dosage: INHALATION ? AEROSOL
     Route: 055

REACTIONS (2)
  - Product taste abnormal [Unknown]
  - Chest discomfort [Unknown]
